FAERS Safety Report 13129480 (Version 1)
Quarter: 2017Q1

REPORT INFORMATION
  Report Type: Spontaneous
  Country: GB (occurrence: GB)
  Receive Date: 20170119
  Receipt Date: 20170119
  Transmission Date: 20170428
  Serious: Yes (Hospitalization)
  Sender: FDA-Public Use
  Company Number: GB-ACCORD-047391

PATIENT
  Age: 81 Year
  Sex: Female

DRUGS (15)
  1. DABIGATRAN/DABIGATRAN ETEXILATE [Concomitant]
     Indication: ATRIAL FIBRILLATION
  2. BISOPROLOL [Concomitant]
     Active Substance: BISOPROLOL
     Indication: ATRIAL FIBRILLATION
  3. GABAPENTIN. [Concomitant]
     Active Substance: GABAPENTIN
     Dosage: AT NIGHT
  4. DOXAZOSIN [Suspect]
     Active Substance: DOXAZOSIN\DOXAZOSIN MESYLATE
     Indication: PRODUCT USED FOR UNKNOWN INDICATION
     Dosage: IN THE MORNING.
     Dates: end: 20160429
  5. ISOSORBIDE. [Suspect]
     Active Substance: ISOSORBIDE
     Indication: PRODUCT USED FOR UNKNOWN INDICATION
     Dates: end: 20160429
  6. PREDNISONE. [Concomitant]
     Active Substance: PREDNISONE
  7. BUPRENORPHINE. [Concomitant]
     Active Substance: BUPRENORPHINE
     Dosage: 10 MICROGRAMS/HOUR
     Route: 062
  8. DOSULEPIN HYDROCHLORIDE [Concomitant]
     Active Substance: DOTHIEPIN HYDROCHLORIDE
     Dosage: AT NIGHT
  9. RANOLAZINE/RANOLAZINE HYDROCHLORIDE [Concomitant]
  10. LIBRIUM [Concomitant]
     Active Substance: CHLORDIAZEPOXIDE HYDROCHLORIDE
     Indication: ANXIETY
  11. DIGOXIN. [Concomitant]
     Active Substance: DIGOXIN
     Indication: ATRIAL FIBRILLATION
     Dosage: IN THE MORNING
     Dates: start: 20160429
  12. NICORANDIL [Suspect]
     Active Substance: NICORANDIL
     Indication: PRODUCT USED FOR UNKNOWN INDICATION
     Dates: end: 20160429
  13. ATORVASTATIN [Concomitant]
     Active Substance: ATORVASTATIN
  14. FUROSEMIDE. [Concomitant]
     Active Substance: FUROSEMIDE
     Dosage: IN THE MORNING
  15. TOLTERODINE/TOLTERODINE L-TARTRATE [Concomitant]

REACTIONS (5)
  - Abdominal tenderness [Unknown]
  - Gastric ulcer [Recovering/Resolving]
  - Skin ulcer [Unknown]
  - Presyncope [Unknown]
  - Dizziness [Unknown]
